FAERS Safety Report 16335021 (Version 2)
Quarter: 2019Q2

REPORT INFORMATION
  Report Type: Spontaneous
  Country: US (occurrence: US)
  Receive Date: 20190520
  Receipt Date: 20190524
  Transmission Date: 20190711
  Serious: No
  Sender: FDA-Public Use
  Company Number: US-SHIRE-US201916059

PATIENT
  Age: 87 Year
  Sex: Female
  Weight: 48.07 kg

DRUGS (3)
  1. AMLODIPINE [Concomitant]
     Active Substance: AMLODIPINE BESYLATE
     Indication: BLOOD PRESSURE MEASUREMENT
  2. MOTEGRITY [Suspect]
     Active Substance: PRUCALOPRIDE SUCCINATE
     Indication: GASTROINTESTINAL MOTILITY DISORDER
     Dosage: 2 MILLIGRAM, 1X/DAY:QD
     Route: 048
     Dates: start: 20190511
  3. MOTEGRITY [Suspect]
     Active Substance: PRUCALOPRIDE SUCCINATE
     Dosage: UNK
     Route: 065
     Dates: start: 20190511

REACTIONS (9)
  - Pain [Recovering/Resolving]
  - Product use complaint [Recovering/Resolving]
  - Abdominal distension [Recovering/Resolving]
  - Diarrhoea [Unknown]
  - Abdominal pain upper [Recovering/Resolving]
  - Malaise [Recovering/Resolving]
  - Abdominal pain [Recovering/Resolving]
  - Abdominal discomfort [Recovering/Resolving]
  - Flatulence [Recovering/Resolving]

NARRATIVE: CASE EVENT DATE: 20190504
